FAERS Safety Report 6207298-8 (Version None)
Quarter: 2009Q2

REPORT INFORMATION
  Report Type: 
  Country: None (occurrence: None)
  Receive Date: 20090527
  Receipt Date: 20090527
  Transmission Date: 20091009
  Serious: Yes (Hospitalization, Other)
  Sender: FDA-Public Use
  Company Number: None

PATIENT
  Age: 58 Year
  Sex: Female
  Weight: 48.9885 kg

DRUGS (1)
  1. LOVASTATIN [Suspect]

REACTIONS (12)
  - ALOPECIA [None]
  - ASTHENIA [None]
  - CHEST PAIN [None]
  - CONTUSION [None]
  - DYSPNOEA [None]
  - GLOSSODYNIA [None]
  - MIGRAINE [None]
  - MUSCLE SPASMS [None]
  - MYALGIA [None]
  - ORAL PAIN [None]
  - PRURITUS [None]
  - RASH [None]
